FAERS Safety Report 20292165 (Version 1)
Quarter: 2022Q1

REPORT INFORMATION
  Report Type: Spontaneous
  Country: DE (occurrence: DE)
  Receive Date: 20220104
  Receipt Date: 20220104
  Transmission Date: 20220423
  Serious: Yes (Hospitalization)
  Sender: FDA-Public Use
  Company Number: DE-ADRED-07418-01

PATIENT
  Age: 74 Year
  Sex: Male
  Weight: 82 kg

DRUGS (17)
  1. ALLOPURINOL [Suspect]
     Active Substance: ALLOPURINOL
     Dosage: UNK (100 MG, 1-0-0-0, TABLETTEN)
     Route: 048
  2. RAMIPRIL [Suspect]
     Active Substance: RAMIPRIL
     Indication: Product used for unknown indication
     Dosage: UNK(5 MG, 1-0-1-0, TABLETTEN)
     Route: 048
  3. FUROSEMIDE [Suspect]
     Active Substance: FUROSEMIDE
     Indication: Product used for unknown indication
     Dosage: UNK (40 MG, 1-0.5-0-0, TABLETTEN)
     Route: 048
  4. PHENPROCOUMON [Suspect]
     Active Substance: PHENPROCOUMON
     Indication: Product used for unknown indication
     Dosage: UNK (3 MG, AFTER QUICK, TABLETS)
     Route: 048
  5. ASPIRIN [Suspect]
     Active Substance: ASPIRIN
     Indication: Product used for unknown indication
     Dosage: UNK (100 MG, 0-1-0-0, TABLETTEN)
     Route: 048
  6. METAMIZOL [Suspect]
     Active Substance: METAMIZOLE SODIUM
     Indication: Product used for unknown indication
     Dosage: UNK (500 MG, BEI BEDARF, TABLETTEN)
     Route: 048
  7. IBUPROFEN [Suspect]
     Active Substance: IBUPROFEN
     Indication: Product used for unknown indication
     Dosage: UNK (800 MG, BEI BEDARF, TABLETTEN)
     Route: 048
  8. NALOXONE HYDROCHLORIDE\OXYCODONE HYDROCHLORIDE [Suspect]
     Active Substance: NALOXONE HYDROCHLORIDE\OXYCODONE HYDROCHLORIDE
     Indication: Product used for unknown indication
     Dosage: UNK (10|20 MG, 1-0-1-0, RETARD-TABLETTEN)
     Route: 048
  9. GABAPENTIN [Suspect]
     Active Substance: GABAPENTIN
     Indication: Product used for unknown indication
     Dosage: UNK (300 MG, 2-2-2-0, KAPSELN)
     Route: 048
  10. GLYCOPYRRONIUM\INDACATEROL [Concomitant]
     Active Substance: GLYCOPYRRONIUM\INDACATEROL
     Dosage: UNK  (50|110 ?G, 1-0-0-0, INHALATIONSPULVER)
     Route: 055
  11. ZOLPIDEM [Concomitant]
     Active Substance: ZOLPIDEM TARTRATE
     Dosage: UNK (10 MG, 0-0-0-0.5, TABLETTEN)
     Route: 048
  12. PANTOPRAZOLE SODIUM [Concomitant]
     Active Substance: PANTOPRAZOLE SODIUM
     Dosage: UNK (40 MG, 1-0-0-0, TABLETTEN)
     Route: 048
  13. SALBUHEXAL [Concomitant]
     Active Substance: ALBUTEROL
     Dosage: UNK (0.1 MG, 1-1-1-1, METERED DOSE INHALER)
     Route: 055
  14. LERCANIDIPINE [Concomitant]
     Active Substance: LERCANIDIPINE
     Dosage: UNK (20 MG, 1-0-0-0, TABLETTEN)
     Route: 048
  15. FERROUS SULFATE [Concomitant]
     Active Substance: FERROUS SULFATE
     Dosage: UNK (80 MG, 1-0-0-0, RETARD-TABLETTEN)
     Route: 048
  16. ATORVASTATIN [Concomitant]
     Active Substance: ATORVASTATIN
     Dosage: UNK (20 MG, 0-0-1-0, TABLETTEN)
     Route: 048
  17. LEVOTHYROXINUM NATRICUM [Concomitant]
     Dosage: UNK (75 ?G, 1-0-0-0, TABLETTEN)
     Route: 048

REACTIONS (1)
  - Implant site inflammation [Unknown]

NARRATIVE: CASE EVENT DATE: 20210101
